FAERS Safety Report 4665741-X (Version None)
Quarter: 2005Q2

REPORT INFORMATION
  Report Type: 
  Country: None (occurrence: None)
  Receive Date: 20050517
  Receipt Date: 20050502
  Transmission Date: 20051028
  Serious: Yes (Hospitalization)
  Sender: FDA-Public Use
  Company Number: P200500008

PATIENT
  Age: 79 Year
  Sex: Male
  Weight: 117.9 kg

DRUGS (21)
  1. PLENAXIS [Suspect]
     Dosage: SEE IMAGE
     Route: 030
     Dates: start: 20040902, end: 20040902
  2. PLENAXIS [Suspect]
     Dosage: SEE IMAGE
     Route: 030
     Dates: start: 20040917, end: 20040917
  3. PLENAXIS [Suspect]
     Dosage: SEE IMAGE
     Route: 030
     Dates: start: 20041025, end: 20041025
  4. PLENAXIS [Suspect]
     Dosage: SEE IMAGE
     Route: 030
     Dates: start: 20041123, end: 20041123
  5. PLENAXIS [Suspect]
     Dosage: SEE IMAGE
     Route: 030
     Dates: start: 20050118, end: 20050118
  6. PLENAXIS [Suspect]
     Dosage: SEE IMAGE
     Route: 030
     Dates: start: 20050217, end: 20050217
  7. PLENAXIS [Suspect]
     Dosage: SEE IMAGE
     Route: 030
     Dates: start: 20041221, end: 20051221
  8. PROSCAR [Concomitant]
  9. CASODEX [Concomitant]
  10. OCUVITE (RETINOL, ASCORBIC ACID, TOCOPHEROL) [Concomitant]
  11. ALBUTEROL [Concomitant]
  12. LISINOPRIL [Concomitant]
  13. PREDNISONE [Concomitant]
  14. PERCOCET [Concomitant]
  15. HYDROCODONE BITARTRATE [Concomitant]
  16. PEPCID [Concomitant]
  17. OSCAL 500-D (CALCIUM, COLECALCIFEROL) [Concomitant]
  18. NPH INSULIN [Concomitant]
  19. NAPROSYN [Concomitant]
  20. HEPARIN [Concomitant]
  21. ZOMETA [Concomitant]

REACTIONS (2)
  - HYPOTENSION [None]
  - SYNCOPE VASOVAGAL [None]
